FAERS Safety Report 9926122 (Version 1)
Quarter: 2014Q1

REPORT INFORMATION
  Report Type: Spontaneous
  Country: NL (occurrence: NL)
  Receive Date: 20140226
  Receipt Date: 20140226
  Transmission Date: 20141002
  Serious: Yes (Other)
  Sender: FDA-Public Use
  Company Number: NL-PFIZER INC-2014050205

PATIENT
  Age: 15 Year
  Sex: Male
  Weight: 75 kg

DRUGS (2)
  1. DOXYCYCLINE HYCLATE [Suspect]
     Indication: CHLAMYDIAL INFECTION
     Dosage: 100 MG, 2X/DAY
     Dates: start: 20140128, end: 20140208
  2. VENLAFAXINE [Concomitant]
     Dosage: 150 MG, 1X/DAY
     Dates: start: 2011

REACTIONS (3)
  - Suicidal ideation [Recovering/Resolving]
  - Panic attack [Recovering/Resolving]
  - Depressed mood [Recovering/Resolving]
